FAERS Safety Report 11105404 (Version 1)
Quarter: 2015Q2

REPORT INFORMATION
  Report Type: Report from Study
  Country: US (occurrence: US)
  Receive Date: 20150512
  Receipt Date: 20150512
  Transmission Date: 20150821
  Serious: Yes (Other)
  Sender: FDA-Public Use
  Company Number: US-UCBSA-2015014318

PATIENT
  Age: 48 Year
  Sex: Female
  Weight: 81.1 kg

DRUGS (6)
  1. CERTOLIZUMAB PEGOL CD [Suspect]
     Active Substance: CERTOLIZUMAB PEGOL
     Indication: CROHN^S DISEASE
     Dosage: UNK
  2. 6-MP [Concomitant]
     Active Substance: MERCAPTOPURINE
     Dosage: 75MG
     Route: 048
     Dates: start: 20040507, end: 2004
  3. 6-MP [Concomitant]
     Active Substance: MERCAPTOPURINE
     Dosage: 100MG
     Route: 048
     Dates: start: 20100817, end: 201210
  4. 6-MP [Concomitant]
     Active Substance: MERCAPTOPURINE
     Indication: CROHN^S DISEASE
     Dosage: 75MG
     Route: 048
     Dates: start: 20030110, end: 200307
  5. 6-MP [Concomitant]
     Active Substance: MERCAPTOPURINE
     Dosage: 100MG
     Route: 048
     Dates: start: 20121228
  6. 6-MP [Concomitant]
     Active Substance: MERCAPTOPURINE
     Dosage: 100MG
     Route: 048
     Dates: start: 20050218, end: 201003

REACTIONS (1)
  - Basal cell carcinoma [Recovered/Resolved]

NARRATIVE: CASE EVENT DATE: 20131012
